FAERS Safety Report 10146645 (Version 1)
Quarter: 2014Q2

REPORT INFORMATION
  Report Type: Spontaneous
  Country: HR (occurrence: None)
  Receive Date: 20140429
  Receipt Date: 20140429
  Transmission Date: 20141212
  Serious: Yes (Hospitalization)
  Sender: FDA-Public Use
  Company Number: 2014P1003580

PATIENT
  Sex: 0

DRUGS (1)
  1. ASPIRIN [Suspect]

REACTIONS (2)
  - Upper gastrointestinal haemorrhage [None]
  - Drug prescribing error [None]
